FAERS Safety Report 22312683 (Version 2)
Quarter: 2023Q2

REPORT INFORMATION
  Report Type: Spontaneous
  Country: None (occurrence: AE)
  Receive Date: 20230512
  Receipt Date: 20230518
  Transmission Date: 20230721
  Serious: Yes (Hospitalization)
  Sender: FDA-Public Use
  Company Number: AE-Therakind Limited-2141392

PATIENT
  Age: 33 Year
  Sex: Female

DRUGS (6)
  1. METHOTREXATE [Suspect]
     Active Substance: METHOTREXATE
     Indication: Gestational trophoblastic tumour
  2. ETOPOSIDE [Suspect]
     Active Substance: ETOPOSIDE
  3. CYCLOPHOSPHAMIDE [Suspect]
     Active Substance: CYCLOPHOSPHAMIDE
  4. VINCRISTINE [Suspect]
     Active Substance: VINCRISTINE
  5. MESNA [Concomitant]
     Active Substance: MESNA
  6. FOLIC ACID [Concomitant]
     Active Substance: FOLIC ACID

REACTIONS (3)
  - Pneumothorax [Recovered/Resolved]
  - Condition aggravated [Recovered/Resolved]
  - Product use in unapproved indication [Unknown]
